FAERS Safety Report 10071763 (Version 2)
Quarter: 2014Q2

REPORT INFORMATION
  Report Type: Spontaneous
  Country: DE (occurrence: DE)
  Receive Date: 20140411
  Receipt Date: 20140623
  Transmission Date: 20141212
  Serious: Yes (Hospitalization)
  Sender: FDA-Public Use
  Company Number: DE-BIOGENIDEC-2011BI008227

PATIENT
  Age: 24 Year
  Sex: Female
  Weight: 101 kg

DRUGS (2)
  1. AVONEX [Suspect]
     Indication: MULTIPLE SCLEROSIS
     Route: 030
     Dates: start: 20101021, end: 201011
  2. AVONEX [Suspect]
     Indication: MULTIPLE SCLEROSIS
     Route: 030

REACTIONS (8)
  - Pre-eclampsia [Unknown]
  - Gestational hypertension [Recovered/Resolved]
  - Headache [Unknown]
  - Proteinuria [Recovered/Resolved]
  - Haemorrhage in pregnancy [Unknown]
  - Blood alkaline phosphatase increased [Recovered/Resolved]
  - Thrombocytopenia [Unknown]
  - Iron deficiency anaemia [Unknown]
